FAERS Safety Report 13290873 (Version 1)
Quarter: 2017Q1

REPORT INFORMATION
  Report Type: Spontaneous
  Country: US (occurrence: US)
  Receive Date: 20170302
  Receipt Date: 20170302
  Transmission Date: 20170428
  Serious: Yes (Life-Threatening, Disabling)
  Sender: FDA-Public Use
  Company Number: None

PATIENT
  Age: 62 Year
  Sex: Female
  Weight: 82.63 kg

DRUGS (17)
  1. EREYTHROMICIN [Concomitant]
  2. CODEINE SULFATE 30MG TABS [Suspect]
     Active Substance: CODEINE SULFATE
     Indication: OSTEOARTHRITIS
     Dosage: 2-3 PILLS 3-4 TIMES DAILY BY MOUTH
     Route: 048
  3. HYDROXYZINE  HCL [Concomitant]
     Active Substance: HYDROXYZINE HYDROCHLORIDE
  4. ATORVASTATIN CALCIUM. [Concomitant]
     Active Substance: ATORVASTATIN CALCIUM
  5. HYDROCHLOROTHIAZIDE. [Concomitant]
     Active Substance: HYDROCHLOROTHIAZIDE
  6. VITAMIN B12 [Concomitant]
     Active Substance: CYANOCOBALAMIN
  7. DIPHENHYDRAMINE HCL [Concomitant]
     Active Substance: DIPHENHYDRAMINE HYDROCHLORIDE
  8. FLUTICASONE PROPIONATE. [Concomitant]
     Active Substance: FLUTICASONE PROPIONATE
  9. VIT D-3 [Concomitant]
  10. AMLODIPIN BESULFATE [Concomitant]
  11. VA [Concomitant]
  12. CODEINE SULFATE 30MG TABS [Suspect]
     Active Substance: CODEINE SULFATE
     Indication: RHEUMATOID ARTHRITIS
     Dosage: 2-3 PILLS 3-4 TIMES DAILY BY MOUTH
     Route: 048
  13. XOPENEX [Concomitant]
     Active Substance: LEVALBUTEROL HYDROCHLORIDE
  14. DIPYRIDAMOLE. [Concomitant]
     Active Substance: DIPYRIDAMOLE
  15. CODEINE SULFATE 30MG TABS [Suspect]
     Active Substance: CODEINE SULFATE
     Indication: FIBROMYALGIA
     Dosage: 2-3 PILLS 3-4 TIMES DAILY BY MOUTH
     Route: 048
  16. PRAMOXINE HCL [Concomitant]
     Active Substance: PRAMOXINE HYDROCHLORIDE
  17. AYR NASAL MIST [Concomitant]

REACTIONS (5)
  - Blood pressure increased [None]
  - Product quality issue [None]
  - Malaise [None]
  - Drug ineffective [None]
  - Dizziness [None]

NARRATIVE: CASE EVENT DATE: 20170217
